FAERS Safety Report 5821292-8 (Version None)
Quarter: 2008Q3

REPORT INFORMATION
  Report Type: 
  Country: None (occurrence: None)
  Receive Date: 20080722
  Receipt Date: 20080722
  Transmission Date: 20090109
  Serious: Yes (Life-Threatening, Hospitalization, Other)
  Sender: FDA-Public Use
  Company Number: None

PATIENT
  Age: 35 Year
  Sex: Male
  Weight: 97.5234 kg

DRUGS (4)
  1. EFFEXOR XR [Suspect]
     Indication: ANXIETY
     Dosage: 75 MG 2 PER DAY PO
     Route: 048
     Dates: start: 20020110, end: 20070301
  2. EFFEXOR XR [Suspect]
     Indication: DEPRESSION
     Dosage: 75 MG 2 PER DAY PO
     Route: 048
     Dates: start: 20020110, end: 20070301
  3. EFFEXOR XR [Suspect]
     Indication: ANXIETY
     Dosage: 150 MG 2 PER DAY PO
     Route: 048
     Dates: start: 20070302, end: 20080718
  4. EFFEXOR XR [Suspect]
     Indication: DEPRESSION
     Dosage: 150 MG 2 PER DAY PO
     Route: 048
     Dates: start: 20070302, end: 20080718

REACTIONS (26)
  - ACTIVITIES OF DAILY LIVING IMPAIRED [None]
  - AMNESIA [None]
  - CONFUSIONAL STATE [None]
  - CORNEAL REFLEX DECREASED [None]
  - CRYING [None]
  - DIARRHOEA [None]
  - DIZZINESS [None]
  - DRUG DEPENDENCE [None]
  - DRUG WITHDRAWAL SYNDROME [None]
  - DYSSTASIA [None]
  - ELECTRIC SHOCK [None]
  - EMOTIONAL DISORDER [None]
  - FEAR [None]
  - FEELING ABNORMAL [None]
  - FEELING OF DESPAIR [None]
  - GAIT DISTURBANCE [None]
  - GENERAL PHYSICAL HEALTH DETERIORATION [None]
  - INSOMNIA [None]
  - NAUSEA [None]
  - PANIC ATTACK [None]
  - PANIC REACTION [None]
  - PARAESTHESIA [None]
  - PHARMACEUTICAL PRODUCT COMPLAINT [None]
  - SUICIDAL IDEATION [None]
  - TINNITUS [None]
  - VERTIGO [None]
